FAERS Safety Report 5580170-2 (Version None)
Quarter: 2008Q1

REPORT INFORMATION
  Report Type: 
  Country: None (occurrence: None)
  Receive Date: 20080103
  Receipt Date: 20071220
  Transmission Date: 20080703
  Serious: Yes (Other)
  Sender: FDA-Public Use
  Company Number: QA-TYCO HEALTHCARE/MALLINCKRODT-T200701593

PATIENT

DRUGS (1)
  1. LIQUID BAROSPERSE [Suspect]
     Indication: X-RAY WITH CONTRAST UPPER GASTROINTESTINAL TRACT

REACTIONS (3)
  - ASPIRATION [None]
  - FIBROSIS [None]
  - INTERSTITIAL LUNG DISEASE [None]
